FAERS Safety Report 10570588 (Version 1)
Quarter: 2014Q4

REPORT INFORMATION
  Report Type: Spontaneous
  Country: US (occurrence: None)
  Receive Date: 20141106
  Receipt Date: 20141106
  Transmission Date: 20150529
  Serious: Yes (Hospitalization)
  Sender: FDA-Public Use
  Company Number: None

PATIENT
  Age: 61 Year
  Sex: Female
  Weight: 72 kg

DRUGS (1)
  1. ZETIA [Suspect]
     Active Substance: EZETIMIBE
     Indication: BLOOD CHOLESTEROL INCREASED
     Dosage: 1 TABLET, ONCE DAILY, TAKEN BY MOUTH
     Route: 048
     Dates: start: 20140921, end: 20140930

REACTIONS (10)
  - Fatigue [None]
  - Respiratory failure [None]
  - Weight decreased [None]
  - Sepsis [None]
  - Pneumonia bacterial [None]
  - Pneumonia [None]
  - Abdominal pain [None]
  - Pharyngitis streptococcal [None]
  - Rash generalised [None]
  - Lymphadenopathy [None]

NARRATIVE: CASE EVENT DATE: 20140929
